FAERS Safety Report 7553059-7 (Version None)
Quarter: 2011Q2

REPORT INFORMATION
  Report Type: 
  Country: None (occurrence: None)
  Receive Date: 20110616
  Receipt Date: 20110607
  Transmission Date: 20111010
  Serious: Yes (Hospitalization)
  Sender: FDA-Public Use
  Company Number: FR-MERCK-1009FRA00047

PATIENT
  Age: 52 Year
  Sex: Male

DRUGS (5)
  1. JANUVIA [Suspect]
     Indication: TYPE 2 DIABETES MELLITUS
     Route: 048
     Dates: start: 20100724, end: 20100812
  2. KETOPROFEN [Concomitant]
     Route: 065
     Dates: start: 20100724, end: 20100730
  3. GLIMEPIRIDE [Concomitant]
     Indication: TYPE 2 DIABETES MELLITUS
     Route: 048
  4. AMOXICILLIN [Concomitant]
     Indication: URINARY TRACT INFECTION
     Route: 048
     Dates: start: 20100821, end: 20100826
  5. CEFIXIME [Concomitant]
     Indication: URINARY TRACT INFECTION
     Route: 048
     Dates: start: 20100717, end: 20100725

REACTIONS (6)
  - ASTHENIA [None]
  - TOXIC SKIN ERUPTION [None]
  - PRURITUS [None]
  - EOSINOPHILIA [None]
  - RASH PAPULAR [None]
  - NEUTROPENIA [None]
